FAERS Safety Report 5831525-X (Version None)
Quarter: 2008Q3

REPORT INFORMATION
  Report Type: 
  Country: None (occurrence: None)
  Receive Date: 20080801
  Receipt Date: 20080728
  Transmission Date: 20090109
  Serious: Yes (Other)
  Sender: FDA-Public Use
  Company Number: AU-MERCK-0807AUS00278

PATIENT
  Sex: Female

DRUGS (1)
  1. FOSAMAX [Suspect]
     Indication: WRIST FRACTURE
     Route: 048
     Dates: start: 20020101

REACTIONS (2)
  - GASTROINTESTINAL CARCINOMA [None]
  - TOOTH DISORDER [None]
